FAERS Safety Report 5079810-6 (Version None)
Quarter: 2006Q3

REPORT INFORMATION
  Report Type: 
  Country: None (occurrence: None)
  Receive Date: 20060808
  Receipt Date: 20060731
  Transmission Date: 20061208
  Serious: Yes (Hospitalization)
  Sender: FDA-Public Use
  Company Number: HQWYE087713AUG03

PATIENT
  Age: 46 Year
  Sex: Female
  Weight: 118.95 kg

DRUGS (5)
  1. PREMPRO [Suspect]
     Indication: HOT FLUSH
     Dosage: 0.625MG/2.5MG, ORAL
     Route: 048
     Dates: start: 20000801, end: 20020901
  2. PREMPRO [Suspect]
     Indication: NIGHT SWEATS
     Dosage: 0.625MG/2.5MG, ORAL
     Route: 048
     Dates: start: 20000801, end: 20020901
  3. ZIAC [Concomitant]
  4. TOPROL-XL [Concomitant]
  5. ASPIRIN [Concomitant]

REACTIONS (13)
  - ANGINA PECTORIS [None]
  - CARDIOMEGALY [None]
  - CHEST DISCOMFORT [None]
  - CHEST PAIN [None]
  - DEPRESSION [None]
  - DYSPNOEA [None]
  - ELECTROCARDIOGRAM ST-T CHANGE [None]
  - EXERCISE ELECTROCARDIOGRAM ABNORMAL [None]
  - HYPERHIDROSIS [None]
  - HYPERTENSION [None]
  - ISCHAEMIA [None]
  - NAUSEA [None]
  - SUICIDAL IDEATION [None]
